FAERS Safety Report 8974998 (Version 2)
Quarter: 2013Q2

REPORT INFORMATION
  Report Type: Spontaneous
  Country: DK (occurrence: DK)
  Receive Date: 20121219
  Receipt Date: 20130419
  Transmission Date: 20140414
  Serious: Yes (Death)
  Sender: FDA-Public Use
  Company Number: DK-ELI_LILLY_AND_COMPANY-DK201212006111

PATIENT
  Age: 65 Year
  Sex: Male
  Weight: 77 kg

DRUGS (6)
  1. ZYPREXA [Suspect]
  2. ZYPADHERA [Suspect]
     Indication: BIPOLAR DISORDER
     Dosage: 210 MG, 2/M
     Dates: start: 20110329
  3. ZYPADHERA [Suspect]
     Dosage: 210 MG, EVERY 3 WEEKS
     Dates: start: 20120308
  4. ZYPADHERA [Suspect]
     Dosage: 210 MG, 2/M
     Dates: start: 20121115
  5. METFORMIN [Concomitant]
     Indication: TYPE 2 DIABETES MELLITUS
  6. AKINETON                           /00079501/ [Concomitant]
     Dosage: 2 MG, UNK

REACTIONS (2)
  - Metabolic syndrome [Fatal]
  - Cardiac arrest [Fatal]
